FAERS Safety Report 6988629-8 (Version None)
Quarter: 2010Q3

REPORT INFORMATION
  Report Type: 
  Country: None (occurrence: None)
  Receive Date: 20100916
  Receipt Date: 20100908
  Transmission Date: 20110219
  Serious: Yes (Hospitalization)
  Sender: FDA-Public Use
  Company Number: JP-ABBOTT-10P-087-0670179-00

PATIENT
  Age: 76 Year
  Sex: Male

DRUGS (1)
  1. LEUPLIN FOR INJECTION 3.75 [Suspect]
     Indication: PROSTATE CANCER
     Route: 058

REACTIONS (1)
  - LIVER DISORDER [None]
